FAERS Safety Report 8050756-4 (Version None)
Quarter: 2012Q1

REPORT INFORMATION
  Report Type: 
  Country: None (occurrence: None)
  Receive Date: 20120117
  Receipt Date: 20120117
  Transmission Date: 20120608
  Serious: Yes (Other)
  Sender: FDA-Public Use
  Company Number: None

PATIENT
  Sex: Male
  Weight: 97.522 kg

DRUGS (1)
  1. LARIAM [Suspect]
     Indication: MALARIA PROPHYLAXIS
     Dosage: 250
     Route: 048
     Dates: start: 19930101, end: 20080309

REACTIONS (3)
  - NERVOUS SYSTEM DISORDER [None]
  - GASTROINTESTINAL DISORDER [None]
  - VISUAL IMPAIRMENT [None]
